FAERS Safety Report 25729655 (Version 1)
Quarter: 2025Q3

REPORT INFORMATION
  Report Type: Spontaneous
  Country: US (occurrence: None)
  Receive Date: 20250826
  Receipt Date: 20250826
  Transmission Date: 20251020
  Serious: Yes (Life-Threatening)
  Sender: FDA-CTU
  Company Number: None

PATIENT
  Age: 75 Year
  Sex: Female

DRUGS (11)
  1. REPATHA [Suspect]
     Active Substance: EVOLOCUMAB
     Indication: Hyperlipidaemia
     Dosage: FREQUENCY : EVERY OTHER WEEK;?
     Route: 058
     Dates: start: 20141010, end: 20250707
  2. PROAIR HFA [Concomitant]
     Active Substance: ALBUTEROL SULFATE
  3. VITAMIN D [Concomitant]
     Active Substance: VITAMIN D NOS
  4. CLARITIN [Concomitant]
     Active Substance: LORATADINE
  5. COREG [Concomitant]
     Active Substance: CARVEDILOL
  6. epinephrine inj pen [Concomitant]
  7. HYDROCHLOROTHIAZIDE [Concomitant]
     Active Substance: HYDROCHLOROTHIAZIDE
  8. Jaridiance [Concomitant]
  9. VITAMINS [Concomitant]
     Active Substance: VITAMINS
  10. PREMARIN [Concomitant]
     Active Substance: ESTROGENS, CONJUGATED
  11. VITAMIN C [Concomitant]
     Active Substance: ASCORBIC ACID

REACTIONS (2)
  - Pain in extremity [None]
  - Mobility decreased [None]

NARRATIVE: CASE EVENT DATE: 20250707
